FAERS Safety Report 8661693 (Version 4)
Quarter: 2012Q4

REPORT INFORMATION
  Report Type: 
  Country: CA (occurrence: CA)
  Receive Date: 20120712
  Receipt Date: 20121010
  Transmission Date: 20130627
  Serious: Yes (Other)
  Sender: FDA-Public Use
  Company Number: CA-PFIZER INC-2012138232

PATIENT
  Age: 75 Year
  Sex: Male

DRUGS (3)
  1. LYRICA [Suspect]
     Dosage: 50 mg, 1x/day at bedtime
     Dates: start: 20120611, end: 201207
  2. LYRICA [Suspect]
     Dosage: UNK
     Dates: start: 201207
  3. MORPHINE [Concomitant]
     Dosage: UNK

REACTIONS (14)
  - Cerebrovascular accident [Unknown]
  - Arterial occlusive disease [Unknown]
  - Dizziness [Not Recovered/Not Resolved]
  - Insomnia [Not Recovered/Not Resolved]
  - Dry mouth [Not Recovered/Not Resolved]
  - Disturbance in attention [Not Recovered/Not Resolved]
  - Eating disorder symptom [Not Recovered/Not Resolved]
  - Decreased appetite [Not Recovered/Not Resolved]
  - Constipation [Not Recovered/Not Resolved]
  - Balance disorder [Not Recovered/Not Resolved]
  - Vision blurred [Unknown]
  - Diplopia [Unknown]
  - Abdominal discomfort [Unknown]
  - Memory impairment [Unknown]
